FAERS Safety Report 7691340-1 (Version None)
Quarter: 2011Q3

REPORT INFORMATION
  Report Type: 
  Country: None (occurrence: None)
  Receive Date: 20110818
  Receipt Date: 20110808
  Transmission Date: 20111222
  Serious: Yes (Hospitalization)
  Sender: FDA-Public Use
  Company Number: PHHY2011US66161

PATIENT
  Sex: Female

DRUGS (14)
  1. ALLOPURINOL [Concomitant]
     Dosage: 300 MG, DAILY
  2. TRAMADOL HCL [Concomitant]
     Dosage: 50 MG, DAILY
  3. CEPHALEXIN [Concomitant]
     Dosage: 500 MG, Q6H
  4. AZITHROMYCIN [Concomitant]
     Dosage: 500 MG, ONE TABLET DAILY
  5. PROCHLORPERAZINE [Concomitant]
     Indication: NAUSEA
     Dosage: 10 MG, Q6H PRN
  6. VICODIN [Concomitant]
  7. NYSTATIN [Concomitant]
     Dosage: UNK UKN, SWISH AND SWALLOW
  8. GLEEVEC [Suspect]
     Indication: CHRONIC MYELOID LEUKAEMIA
     Dosage: 400 MG, QD
     Route: 048
     Dates: start: 20110613
  9. LEVAQUIN [Concomitant]
  10. MORPHINE SULFATE [Concomitant]
     Dosage: 30 MG, Q4H PRN
     Route: 048
  11. PREDNISONE [Concomitant]
     Dosage: 10 MG, QD
  12. DEXLANSOPRAZOLE [Concomitant]
     Dosage: 30 MG, QD
  13. REQUIP [Concomitant]
  14. ADVAIR DISKUS 100/50 [Concomitant]
     Dosage: 250 MG/ 50 MG, ONE PUFF

REACTIONS (3)
  - BACK PAIN [None]
  - MUSCLE CONTRACTIONS INVOLUNTARY [None]
  - MUSCULOSKELETAL PAIN [None]
